FAERS Safety Report 4490550-4 (Version None)
Quarter: 2004Q4

REPORT INFORMATION
  Report Type: 
  Country: None (occurrence: None)
  Receive Date: 20041028
  Receipt Date: 20041014
  Transmission Date: 20050328
  Serious: Yes (Disabling)
  Sender: FDA-Public Use
  Company Number: 2004239202JP

PATIENT
  Age: 65 Year
  Sex: Male

DRUGS (5)
  1. XALATAN [Suspect]
     Indication: INTRAOCULAR PRESSURE INCREASED
     Dosage: OPTHALMIC
     Route: 047
     Dates: start: 20020101, end: 20030312
  2. CIA (CARBONIC ANHYDRASE INHIBITOR)TABLET [Suspect]
     Indication: INTRAOCULAR PRESSURE INCREASED
     Dosage: ORAL
     Route: 048
     Dates: start: 20020101, end: 20030312
  3. TIMOLOL MALEATE [Suspect]
     Indication: INTRAOCULAR PRESSURE INCREASED
     Dosage: OPTHALMIC
     Route: 047
     Dates: start: 19950101, end: 20030312
  4. DORZOLAMIDE (DORZOLAMIDE) [Suspect]
     Indication: INTRAOCULAR PRESSURE INCREASED
     Dosage: TID, OPTHALMIC
     Route: 047
     Dates: start: 20020101, end: 20030312
  5. BUNAZOSIN HYDROCHLORIDE (BUNAZOSIN HYDROCHLORIDE) [Suspect]
     Indication: INTRAOCULAR PRESSURE INCREASED
     Dosage: TID OPTHALMIC
     Route: 047
     Dates: start: 20020101, end: 20030312

REACTIONS (5)
  - CHOROIDAL DETACHMENT [None]
  - INTRAOCULAR PRESSURE INCREASED [None]
  - MACULOPATHY [None]
  - PAPILLOEDEMA [None]
  - VISUAL ACUITY REDUCED [None]
